FAERS Safety Report 19048687 (Version 2)
Quarter: 2021Q3

REPORT INFORMATION
  Report Type: Spontaneous
  Country: BR (occurrence: BR)
  Receive Date: 20210323
  Receipt Date: 20210723
  Transmission Date: 20211014
  Serious: Yes (Hospitalization, Other)
  Sender: FDA-Public Use
  Company Number: BR-AMERICAN REGENT INC-2021000733

PATIENT
  Sex: Female
  Weight: 72 kg

DRUGS (3)
  1. PYRIDOXAMINE HYDROCHLORIDE\THIAMINE HYDROCHLORIDE\CYANOCOBALAMIN [Concomitant]
     Active Substance: CYANOCOBALAMIN\PYRIDOXAMINE HYDROCHLORIDE\THIAMINE HYDROCHLORIDE
     Indication: PRODUCT USED FOR UNKNOWN INDICATION
     Dosage: 1 IN 3 M
     Route: 030
  2. VENOFER [Suspect]
     Active Substance: IRON SUCROSE
     Dosage: 2 DOSAGE FORMS, 1 IN 7 D
     Route: 042
     Dates: start: 2020
  3. VENOFER [Suspect]
     Active Substance: IRON SUCROSE
     Indication: IRON DEFICIENCY ANAEMIA
     Dosage: 2 AMPOULES OF 5 ML (2 DOSAGE FORMS, 1 IN 3 M)
     Route: 042
     Dates: start: 2013

REACTIONS (8)
  - Vision blurred [Unknown]
  - Abdominal hernia [Unknown]
  - Asthenia [Unknown]
  - Unevaluable event [Unknown]
  - Inability to afford medication [Unknown]
  - Anaemia [Unknown]
  - Impaired work ability [Unknown]
  - Product availability issue [None]

NARRATIVE: CASE EVENT DATE: 2013
